FAERS Safety Report 17037693 (Version 1)
Quarter: 2019Q4

REPORT INFORMATION
  Report Type: Report from Study
  Country: DE (occurrence: DE)
  Receive Date: 20191115
  Receipt Date: 20191115
  Transmission Date: 20200122
  Serious: Yes (Hospitalization, Other)
  Sender: FDA-Public Use
  Company Number: PHHY2018DE048814

PATIENT
  Sex: Male
  Weight: 95 kg

DRUGS (22)
  1. COSENTYX [Suspect]
     Active Substance: SECUKINUMAB
     Dosage: 150 MG (PER APPLICATION)
     Route: 065
     Dates: start: 20170921
  2. COSENTYX [Suspect]
     Active Substance: SECUKINUMAB
     Dosage: 150 MG (PER APPLICATION)
     Route: 065
     Dates: start: 20171121
  3. COSENTYX [Suspect]
     Active Substance: SECUKINUMAB
     Dosage: 150 MG (PER APPLICATION)
     Route: 065
     Dates: start: 20170821
  4. DICLOFENAC [Concomitant]
     Active Substance: DICLOFENAC
     Indication: ANKYLOSING SPONDYLITIS
     Dosage: AS NEEDED, PRN
     Route: 048
     Dates: start: 20071019, end: 20171012
  5. FEBUXOSTAT. [Concomitant]
     Active Substance: FEBUXOSTAT
     Indication: GOUTY ARTHRITIS
     Dosage: 80 MG, QD
     Route: 048
     Dates: start: 20171012
  6. COSENTYX [Suspect]
     Active Substance: SECUKINUMAB
     Indication: ANKYLOSING SPONDYLITIS
     Dosage: 150 MG (ONCE)
     Route: 065
     Dates: start: 20170524
  7. COSENTYX [Suspect]
     Active Substance: SECUKINUMAB
     Dosage: 150 MG (PER APPLICATION)
     Route: 065
     Dates: start: 20170531
  8. PREDNISONE. [Concomitant]
     Active Substance: PREDNISONE
     Indication: ANKYLOSING SPONDYLITIS
     Dosage: 5 MG, QD
     Route: 048
     Dates: start: 201705, end: 20171113
  9. COLCHICUM [Concomitant]
     Active Substance: COLCHICINE
     Indication: GOUTY ARTHRITIS
     Dosage: 0.5 MG, BID
     Route: 048
     Dates: start: 201702
  10. COSENTYX [Suspect]
     Active Substance: SECUKINUMAB
     Dosage: 150 MG (PER APPLICATION)
     Route: 065
     Dates: start: 20171021
  11. COSENTYX [Suspect]
     Active Substance: SECUKINUMAB
     Dosage: 150MG (PER APPLICATION)
     Route: 065
     Dates: end: 20171221
  12. CALCIMAGON [Concomitant]
     Active Substance: CALCIUM
     Indication: OSTEOPOROSIS PROPHYLAXIS
     Dosage: D3, BID
     Route: 048
     Dates: start: 20070322
  13. TILIDINE [Concomitant]
     Active Substance: TILIDINE
     Indication: ANKYLOSING SPONDYLITIS
     Dosage: DOSE AS NEEDED, PRN
     Route: 048
     Dates: start: 201705
  14. COSENTYX [Suspect]
     Active Substance: SECUKINUMAB
     Dosage: 150 MG (PER APPLICATION)
     Route: 065
     Dates: start: 20170621
  15. MTX [Concomitant]
     Active Substance: METHOTREXATE SODIUM
     Indication: ANKYLOSING SPONDYLITIS
     Dosage: 20 MG, QW
     Route: 058
     Dates: start: 200710
  16. PREDNISONE. [Concomitant]
     Active Substance: PREDNISONE
     Dosage: 10 MG, QD
     Route: 048
     Dates: start: 2017
  17. COSENTYX [Suspect]
     Active Substance: SECUKINUMAB
     Dosage: 150 MG (PER APPLICATION)
     Route: 065
     Dates: start: 20170607
  18. COSENTYX [Suspect]
     Active Substance: SECUKINUMAB
     Dosage: 150 MG (PER APPLICATION)
     Route: 065
     Dates: start: 20170614
  19. DICLOFENAC [Concomitant]
     Active Substance: DICLOFENAC
     Dosage: UNK
     Route: 048
     Dates: start: 201711, end: 201711
  20. VALORON [Concomitant]
     Indication: ANKYLOSING SPONDYLITIS
     Dosage: DSOE AS NEEDED, PRN
     Route: 048
     Dates: start: 20090311, end: 20171012
  21. COSENTYX [Suspect]
     Active Substance: SECUKINUMAB
     Dosage: 150 G (PER APPLICATION)
     Route: 065
     Dates: start: 20170721
  22. FOLIC ACID. [Concomitant]
     Active Substance: FOLIC ACID
     Indication: PROPHYLAXIS
     Dosage: 5 MG, QW
     Route: 048
     Dates: start: 200710

REACTIONS (14)
  - Gastrointestinal wall thickening [Unknown]
  - Oesophageal candidiasis [Recovered/Resolved]
  - Blood pressure fluctuation [Recovering/Resolving]
  - Pyrexia [Unknown]
  - Lower gastrointestinal haemorrhage [Unknown]
  - Enterocolitis haemorrhagic [Recovered/Resolved]
  - White blood cell count increased [Unknown]
  - Arthritis [Recovering/Resolving]
  - C-reactive protein increased [Not Recovered/Not Resolved]
  - Abdominal pain [Unknown]
  - Vomiting [Unknown]
  - Diarrhoea [Unknown]
  - Pulmonary embolism [Unknown]
  - Ankylosing spondylitis [Not Recovered/Not Resolved]

NARRATIVE: CASE EVENT DATE: 201711
